FAERS Safety Report 6795345-4 (Version None)
Quarter: 2010Q2

REPORT INFORMATION
  Report Type: 
  Country: None (occurrence: None)
  Receive Date: 20100625
  Receipt Date: 20100618
  Transmission Date: 20101027
  Serious: Yes (Death, Other)
  Sender: FDA-Public Use
  Company Number: FR-WYE-G06294110

PATIENT
  Age: 57 Year
  Sex: Male

DRUGS (1)
  1. TAZOCILLINE [Suspect]
     Indication: SEPSIS
     Dosage: ONE ONLY UNSPECIFIED DOSE
     Route: 042
     Dates: start: 20100519, end: 20100519

REACTIONS (7)
  - ANAPHYLACTIC SHOCK [None]
  - CARDIAC ARREST [None]
  - DISSEMINATED INTRAVASCULAR COAGULATION [None]
  - HAEMORRHAGIC ANAEMIA [None]
  - HYPERLACTACIDAEMIA [None]
  - MULTI-ORGAN FAILURE [None]
  - MYDRIASIS [None]
